FAERS Safety Report 25200508 (Version 5)
Quarter: 2025Q2

REPORT INFORMATION
  Report Type: Spontaneous
  Country: US (occurrence: US)
  Receive Date: 20250415
  Receipt Date: 20250609
  Transmission Date: 20250716
  Serious: Yes (Death, Hospitalization)
  Sender: NOVARTIS
  Company Number: US-002147023-NVSC2025US062368

PATIENT
  Sex: Male
  Weight: 136.05 kg

DRUGS (1)
  1. PLUVICTO [Suspect]
     Active Substance: LUTETIUM LU-177 VIPIVOTIDE TETRAXETAN
     Indication: Prostate cancer
     Route: 042
     Dates: start: 20250305, end: 20250410

REACTIONS (3)
  - Prostate cancer [Fatal]
  - Malignant neoplasm progression [Fatal]
  - Haemoglobin decreased [Fatal]
